FAERS Safety Report 7874889-8 (Version None)
Quarter: 2011Q4

REPORT INFORMATION
  Report Type: 
  Country: None (occurrence: None)
  Receive Date: 20111014
  Receipt Date: 20110124
  Transmission Date: 20120403
  Serious: No
  Sender: FDA-Public Use
  Company Number: 1000018065

PATIENT
  Age: 40 Year
  Sex: Female
  Weight: 73.94 kg

DRUGS (4)
  1. WELLBUTRIN [Suspect]
     Indication: DEPRESSION
     Dates: end: 20100601
  2. LEXAPRO [Suspect]
     Indication: DEPRESSION
     Dosage: 20 MG (20 MG,1 IN 1 D),ORAL
     Route: 048
     Dates: start: 20050101
  3. TRAZODONE (TRAZODONE) (TABLETS) (TRAZODONE) [Concomitant]
  4. TOPAMAX (TOPIRAMATE) (TOPIRAMATE) [Concomitant]

REACTIONS (4)
  - CRYING [None]
  - SUICIDAL IDEATION [None]
  - BIPOLAR DISORDER [None]
  - DRUG INEFFECTIVE [None]
